FAERS Safety Report 20690085 (Version 2)
Quarter: 2022Q2

REPORT INFORMATION
  Report Type: Spontaneous
  Country: NZ (occurrence: NZ)
  Receive Date: 20220408
  Receipt Date: 20220520
  Transmission Date: 20220720
  Serious: Yes (Death, Hospitalization, Other)
  Sender: FDA-Public Use
  Company Number: NZ-MYLANLABS-2022M1013027

PATIENT
  Age: 69 Year
  Sex: Male

DRUGS (19)
  1. CLOZARIL [Suspect]
     Active Substance: CLOZAPINE
     Indication: Schizophrenia
     Dosage: UNK
     Route: 048
     Dates: start: 20170217
  2. CLOZARIL [Suspect]
     Active Substance: CLOZAPINE
     Indication: Parkinson^s disease psychosis
     Dosage: 75 MILLIGRAM, HS
  3. CLOZARIL [Suspect]
     Active Substance: CLOZAPINE
     Dosage: 50 MILLIGRAM, HS
     Dates: start: 20211021
  4. CLOZARIL [Suspect]
     Active Substance: CLOZAPINE
     Dosage: 25 MILLIGRAM, AM
     Dates: start: 20220215, end: 20220228
  5. BENSERAZIDE HYDROCHLORIDE\LEVODOPA [Concomitant]
     Active Substance: BENSERAZIDE HYDROCHLORIDE\LEVODOPA
     Dosage: 62.5 MILLIGRAM, Q4D
  6. CARBIDOPA AND LEVODOPA [Concomitant]
     Active Substance: CARBIDOPA\LEVODOPA
     Dosage: UNK (2 MANE)
  7. CARBIDOPA AND LEVODOPA [Concomitant]
     Active Substance: CARBIDOPA\LEVODOPA
     Dosage: UNK (2 AT LOAM)
  8. CARBIDOPA AND LEVODOPA [Concomitant]
     Active Substance: CARBIDOPA\LEVODOPA
     Dosage: UNK (2 AT MIDDAY)
  9. CARBIDOPA AND LEVODOPA [Concomitant]
     Active Substance: CARBIDOPA\LEVODOPA
     Dosage: UNK (2 AT 1400 HOURS)
  10. CARBIDOPA AND LEVODOPA [Concomitant]
     Active Substance: CARBIDOPA\LEVODOPA
     Dosage: UNK (2 AT 1630 HOURS)
  11. CARBIDOPA AND LEVODOPA [Concomitant]
     Active Substance: CARBIDOPA\LEVODOPA
     Dosage: UNK (2 AT 1900 HOURS )
  12. CARBIDOPA AND LEVODOPA [Concomitant]
     Active Substance: CARBIDOPA\LEVODOPA
     Dosage: UNK (2 AT 2130 HOURS)
  13. CLONAZEPAM [Concomitant]
     Active Substance: CLONAZEPAM
     Dosage: 0.5 MILLIGRAM, HS (ONE AND HALF TAB)
  14. METOPROLOL [Concomitant]
     Active Substance: METOPROLOL
     Dosage: 95 MILLIGRAM, AM
  15. ATORVASTATIN [Concomitant]
     Active Substance: ATORVASTATIN
     Dosage: 20 MILLIGRAM, AM
  16. LACTULOSE [Concomitant]
     Active Substance: LACTULOSE
     Dosage: UNK (PRN)
  17. ACETAMINOPHEN [Concomitant]
     Active Substance: ACETAMINOPHEN
     Dosage: UNK (PRN)
  18. PRAMIPEXOLE [Concomitant]
     Active Substance: PRAMIPEXOLE
     Indication: Parkinson^s disease
     Dosage: 0.5 MILLIGRAM
  19. DOCUSATE SODIUM\SENNOSIDES A AND B [Concomitant]
     Active Substance: DOCUSATE SODIUM\SENNOSIDES A AND B
     Dosage: UNK (PRN)

REACTIONS (17)
  - Urosepsis [Fatal]
  - Supraventricular tachycardia [Fatal]
  - Colitis ischaemic [Recovered/Resolved with Sequelae]
  - Peritonitis [Unknown]
  - Atrial fibrillation [Recovered/Resolved]
  - Neutrophil count decreased [Recovered/Resolved]
  - Malaise [Unknown]
  - Urinary tract infection [Unknown]
  - Dysphagia [Unknown]
  - Haematocrit decreased [Not Recovered/Not Resolved]
  - Lymphocyte count decreased [Recovering/Resolving]
  - Mean cell volume increased [Unknown]
  - Monocyte count decreased [Unknown]
  - White blood cell count decreased [Unknown]
  - Pleural effusion [Unknown]
  - Colitis [Recovered/Resolved]
  - Hypotension [Recovered/Resolved]

NARRATIVE: CASE EVENT DATE: 20220206
